FAERS Safety Report 5224455-8 (Version None)
Quarter: 2007Q1

REPORT INFORMATION
  Report Type: 
  Country: None (occurrence: None)
  Receive Date: 20070126
  Receipt Date: 20070117
  Transmission Date: 20070707
  Serious: Yes (Hospitalization)
  Sender: FDA-Public Use
  Company Number: 234744

PATIENT
  Age: 49 Year
  Sex: Male
  Weight: 89.8 kg

DRUGS (3)
  1. BEVACIZUMAB(BEVACIZUMAB) PWDR + SOLVENT, INFUSION SOLN, 100MG [Suspect]
     Indication: NON-SMALL CELL LUNG CANCER
     Dosage: 1268 MG, Q3W, INTRAVENOUS
     Route: 042
     Dates: start: 20061018, end: 20061220
  2. CISPLATIN [Suspect]
     Indication: NON-SMALL CELL LUNG CANCER
     Dosage: 148 MG, Q3W, INTRAVENOUS
     Route: 042
     Dates: start: 20061018, end: 20061220
  3. TAXOTERE [Suspect]
     Indication: NON-SMALL CELL LUNG CANCER
     Dosage: 148 MG, Q3W, INTRAVENOUS
     Route: 042
     Dates: start: 20061018, end: 20061220

REACTIONS (2)
  - DIVERTICULITIS [None]
  - DIVERTICULUM INTESTINAL [None]
